FAERS Safety Report 11290952 (Version 1)
Quarter: 2015Q3

REPORT INFORMATION
  Report Type: Spontaneous
  Country: CO (occurrence: CO)
  Receive Date: 20150722
  Receipt Date: 20150722
  Transmission Date: 20151125
  Serious: Yes (Other)
  Sender: FDA-Public Use
  Company Number: CO-ENDO PHARMACEUTICALS INC.-2015-001872

PATIENT
  Sex: Male

DRUGS (1)
  1. AVEED [Suspect]
     Active Substance: TESTOSTERONE UNDECANOATE
     Indication: PRODUCT USED FOR UNKNOWN INDICATION
     Route: 065
     Dates: end: 20150708

REACTIONS (4)
  - Feeling hot [Not Recovered/Not Resolved]
  - Cellulitis [Not Recovered/Not Resolved]
  - Flushing [Not Recovered/Not Resolved]
  - Oedema [Not Recovered/Not Resolved]
